FAERS Safety Report 7868013-5 (Version None)
Quarter: 2011Q4

REPORT INFORMATION
  Report Type: 
  Country: None (occurrence: None)
  Receive Date: 20111028
  Receipt Date: 20111021
  Transmission Date: 20120403
  Serious: Yes (Hospitalization)
  Sender: FDA-Public Use
  Company Number: US-CELGENEUS-163-21880-11102657

PATIENT
  Age: 63 Year
  Sex: Female

DRUGS (14)
  1. PERCOCET [Concomitant]
     Route: 065
  2. TOLINASE [Concomitant]
     Route: 065
  3. PRINZIDE [Concomitant]
     Route: 065
  4. ASPIRIN [Concomitant]
     Route: 065
  5. NORVASC [Concomitant]
     Route: 065
  6. DECADRON [Suspect]
     Indication: MULTIPLE MYELOMA
     Route: 065
     Dates: start: 20110920
  7. REVLIMID [Suspect]
     Indication: MULTIPLE MYELOMA
     Dosage: 10 MILLIGRAM
     Route: 048
     Dates: start: 20110920, end: 20110927
  8. AVELOX [Concomitant]
     Indication: PNEUMONIA
     Route: 065
     Dates: start: 20110901
  9. METFORMIN [Concomitant]
     Route: 065
  10. REVLIMID [Suspect]
     Dosage: 10 MILLIGRAM
     Route: 048
     Dates: start: 20111004
  11. PRILOSEC [Concomitant]
     Route: 065
  12. MAGNESIUM OXIDE [Concomitant]
     Route: 065
  13. VELCADE [Suspect]
     Indication: MULTIPLE MYELOMA
     Route: 065
     Dates: start: 20110920
  14. ACYCLOVIR [Concomitant]
     Route: 065

REACTIONS (1)
  - LACTIC ACIDOSIS [None]
